FAERS Safety Report 7832667 (Version 29)
Quarter: 2016Q4

REPORT INFORMATION
  Report Type: Report from Study
  Country: CA (occurrence: CA)
  Receive Date: 20110228
  Receipt Date: 20161206
  Transmission Date: 20170207
  Serious: Yes (Hospitalization, Other)
  Sender: FDA-Public Use
  Company Number: PHHY2011CA13844

PATIENT
  Age: 78 Year
  Sex: Female

DRUGS (4)
  1. SANDOSTATIN LAR DEPOT [Suspect]
     Active Substance: OCTREOTIDE ACETATE
     Dosage: 20 MG, QMO (EVERY 4 WEEKS)
     Route: 030
     Dates: start: 20120101
  2. SANDOSTATIN LAR DEPOT [Suspect]
     Active Substance: OCTREOTIDE ACETATE
     Dosage: 30 MG, QMO (ONCE MONTH)
     Route: 030
     Dates: start: 20120712
  3. SANDOSTATIN LAR DEPOT [Suspect]
     Active Substance: OCTREOTIDE ACETATE
     Indication: ENTEROCUTANEOUS FISTULA
     Dosage: 20 MG, QMO
     Route: 030
     Dates: start: 20100806
  4. SANDOSTATIN [Suspect]
     Active Substance: OCTREOTIDE ACETATE
     Indication: ENTEROCUTANEOUS FISTULA
     Dosage: 50 UG, TID
     Route: 058
     Dates: start: 20130214

REACTIONS (27)
  - Blood sodium abnormal [Unknown]
  - Nausea [Not Recovered/Not Resolved]
  - Blood pressure decreased [Unknown]
  - Vaginal haemorrhage [Unknown]
  - Feeling abnormal [Unknown]
  - Pneumonia [Recovered/Resolved]
  - Dehydration [Unknown]
  - Blood potassium abnormal [Unknown]
  - Loss of consciousness [Unknown]
  - Vomiting [Recovering/Resolving]
  - Cancer pain [Recovering/Resolving]
  - Body temperature decreased [Unknown]
  - Wound [Unknown]
  - Viral infection [Unknown]
  - Vaginal cancer [Unknown]
  - Fistula discharge [Unknown]
  - Abdominal pain [Unknown]
  - Fall [Unknown]
  - Urinary tract infection [Recovering/Resolving]
  - Device related infection [Recovering/Resolving]
  - Abdominal discomfort [Recovered/Resolved]
  - Asthenia [Recovering/Resolving]
  - Intestinal obstruction [Unknown]
  - Injection site haemorrhage [Recovered/Resolved]
  - Somnolence [Recovering/Resolving]
  - Product use issue [Unknown]
  - Blood pressure diastolic decreased [Unknown]

NARRATIVE: CASE EVENT DATE: 20130214
